FAERS Safety Report 25670921 (Version 2)
Quarter: 2025Q3

REPORT INFORMATION
  Report Type: Spontaneous
  Country: US (occurrence: US)
  Receive Date: 20250812
  Receipt Date: 20250929
  Transmission Date: 20251020
  Serious: Yes (Other)
  Sender: APELLIS PHARMACEUTICALS
  Company Number: US-APELLIS-2025-APL-0001519

PATIENT
  Weight: 69.75 kg

DRUGS (1)
  1. SYFOVRE [Suspect]
     Active Substance: PEGCETACOPLAN
     Indication: Dry age-related macular degeneration
     Route: 031
     Dates: start: 20250516, end: 20250516

REACTIONS (3)
  - Vitritis [Unknown]
  - Anterior chamber cell [Unknown]
  - Blindness [Unknown]

NARRATIVE: CASE EVENT DATE: 20250516
